FAERS Safety Report 23396824 (Version 1)
Quarter: 2024Q1

REPORT INFORMATION
  Report Type: Spontaneous
  Country: CA (occurrence: CA)
  Receive Date: 20240112
  Receipt Date: 20240112
  Transmission Date: 20240410
  Serious: Yes (Death)
  Sender: FDA-Public Use
  Company Number: CA-SANDOZ-SDZ2024CA003385

PATIENT
  Age: 63 Year
  Sex: Male

DRUGS (16)
  1. ATOVAQUONE [Suspect]
     Active Substance: ATOVAQUONE
     Indication: Antiviral prophylaxis
     Dosage: UNK
     Route: 048
  2. GANCICLOVIR [Suspect]
     Active Substance: GANCICLOVIR
     Indication: Antiviral prophylaxis
     Dosage: UNK
     Route: 042
  3. HYDROCORTISONE [Suspect]
     Active Substance: HYDROCORTISONE
     Indication: Graft versus host disease
     Dosage: UNK
     Route: 037
  4. IMMUNE GLOBULIN NOS [Suspect]
     Active Substance: IMMUNE GLOBULIN NOS
     Indication: Graft versus host disease
     Dosage: UNK
     Route: 042
  5. LACOSAMIDE [Suspect]
     Active Substance: LACOSAMIDE
     Indication: Status epilepticus
     Dosage: UNK
     Route: 065
  6. LEVETIRACETAM [Suspect]
     Active Substance: LEVETIRACETAM
     Indication: Status epilepticus
     Dosage: UNK
     Route: 065
  7. METHOTREXATE [Suspect]
     Active Substance: METHOTREXATE
     Indication: Graft versus host disease
     Dosage: UNK
     Route: 065
  8. MIDAZOLAM [Suspect]
     Active Substance: MIDAZOLAM
     Indication: Status epilepticus
     Dosage: UNK
     Route: 065
  9. PHENOBARBITAL [Suspect]
     Active Substance: PHENOBARBITAL
     Indication: Status epilepticus
     Dosage: UNK
     Route: 065
  10. PHENYTOIN [Suspect]
     Active Substance: PHENYTOIN
     Indication: Status epilepticus
     Dosage: UNK
     Route: 065
  11. PROPOFOL [Suspect]
     Active Substance: PROPOFOL
     Indication: Status epilepticus
     Dosage: UNK
     Route: 065
  12. SULFAMETHOXAZOLE AND TRIMETHOPRIM [Suspect]
     Active Substance: SULFAMETHOXAZOLE\TRIMETHOPRIM
     Indication: Antiviral prophylaxis
     Dosage: UNK
     Route: 065
  13. TACROLIMUS [Suspect]
     Active Substance: TACROLIMUS
     Indication: Renal impairment
     Dosage: UNK
     Route: 065
  14. VALGANCICLOVIR [Suspect]
     Active Substance: VALGANCICLOVIR
     Indication: Antiviral prophylaxis
     Dosage: UNK
     Route: 065
  15. AZATHIOPRINE [Concomitant]
     Active Substance: AZATHIOPRINE
     Indication: Product used for unknown indication
     Dosage: UNK
     Route: 065
  16. SIMULECT [Concomitant]
     Active Substance: BASILIXIMAB
     Indication: Product used for unknown indication
     Dosage: UNK
     Route: 042

REACTIONS (3)
  - Drug ineffective [Fatal]
  - Thrombocytopenia [Fatal]
  - Thrombotic microangiopathy [Fatal]
